FAERS Safety Report 4506203-X (Version None)
Quarter: 2004Q4

REPORT INFORMATION
  Report Type: 
  Country: None (occurrence: None)
  Receive Date: 20041025
  Receipt Date: 20031107
  Transmission Date: 20050328
  Serious: Yes (Hospitalization)
  Sender: FDA-Public Use
  Company Number: US-JNJFOC-20031002765

PATIENT
  Age: 29 Year
  Sex: Female
  Weight: 65.7716 kg

DRUGS (11)
  1. REMICADE [Suspect]
     Indication: CROHN'S DISEASE
     Dosage: 5 MG/KG 1 IN 1 DAY INTRAVENOUS
     Route: 042
     Dates: start: 20000101
  2. METHOTREXATE [Concomitant]
  3. STEROIDS (CORTICOSTEROID NOS) [Concomitant]
  4. DEPAKOTE [Concomitant]
  5. PHENERGAN [Concomitant]
  6. COLESTID [Concomitant]
  7. XANAX [Concomitant]
  8. LORTAB [Concomitant]
  9. EFFEXOR [Concomitant]
  10. LOMOTIL [Concomitant]
  11. VITAMIN D [Concomitant]

REACTIONS (5)
  - FATIGUE [None]
  - HYPERSENSITIVITY [None]
  - OEDEMA PERIPHERAL [None]
  - SERUM SICKNESS [None]
  - SMALL INTESTINAL OBSTRUCTION [None]
